FAERS Safety Report 7484264-6 (Version None)
Quarter: 2011Q2

REPORT INFORMATION
  Report Type: 
  Country: None (occurrence: None)
  Receive Date: 20110517
  Receipt Date: 20101001
  Transmission Date: 20111010
  Serious: Yes (Other)
  Sender: FDA-Public Use
  Company Number: US-BAYER-201034744NA

PATIENT
  Age: 19 Year
  Sex: Female
  Weight: 72.562 kg

DRUGS (2)
  1. YAZ [Suspect]
     Indication: PRODUCT USED FOR UNKNOWN INDICATION
     Dosage: UNK
     Dates: start: 20080709, end: 20090101
  2. RANITIDINE [Concomitant]
     Dosage: UNK
     Dates: start: 20081118

REACTIONS (5)
  - BILE DUCT STONE [None]
  - CHOLECYSTECTOMY [None]
  - CHOLELITHIASIS [None]
  - CHOLECYSTITIS CHRONIC [None]
  - GALLBLADDER CHOLESTEROLOSIS [None]
